FAERS Safety Report 9746675 (Version 2)
Quarter: 2013Q4

REPORT INFORMATION
  Report Type: Spontaneous
  Country: AU (occurrence: AU)
  Receive Date: 20131211
  Receipt Date: 20131211
  Transmission Date: 20140711
  Serious: Yes (Other)
  Sender: FDA-Public Use
  Company Number: AU-ABBVIE-13P-008-1128255-00

PATIENT
  Age: 49 Year
  Sex: Female
  Weight: 67 kg

DRUGS (2)
  1. HUMIRA [Suspect]
     Indication: CROHN^S DISEASE
     Route: 058
     Dates: start: 20120530, end: 20130521
  2. 6-MP [Concomitant]
     Indication: PRODUCT USED FOR UNKNOWN INDICATION

REACTIONS (6)
  - Systemic lupus erythematosus [Unknown]
  - Antinuclear antibody positive [Unknown]
  - Inflammatory marker increased [Recovered/Resolved]
  - Arthralgia [Recovered/Resolved]
  - Arthralgia [Unknown]
  - Myalgia [Unknown]
